FAERS Safety Report 6458592-7 (Version None)
Quarter: 2009Q4

REPORT INFORMATION
  Report Type: 
  Country: None (occurrence: None)
  Receive Date: 20091126
  Receipt Date: 20091112
  Transmission Date: 20100525
  Serious: Yes (Hospitalization)
  Sender: FDA-Public Use
  Company Number: US-ELI_LILLY_AND_COMPANY-US200804004419

PATIENT
  Sex: Female
  Weight: 56.689 kg

DRUGS (6)
  1. FORTEO [Suspect]
     Indication: OSTEOPOROSIS
     Dosage: 20 UG, DAILY (1/D)
     Dates: start: 20071113, end: 20080101
  2. FORTEO [Suspect]
     Dates: start: 20080501
  3. NEXIUM [Concomitant]
  4. LIPITOR [Concomitant]
     Dosage: 10 MG, UNK
     Dates: end: 20080101
  5. CALCIUM [Concomitant]
     Dates: end: 20080101
  6. ALAVERT [Concomitant]
     Dates: end: 20080101

REACTIONS (1)
  - GASTROOESOPHAGEAL REFLUX DISEASE [None]
